FAERS Safety Report 7704374-5 (Version None)
Quarter: 2011Q3

REPORT INFORMATION
  Report Type: 
  Country: None (occurrence: None)
  Receive Date: 20110823
  Receipt Date: 20110818
  Transmission Date: 20111222
  Serious: Yes (Hospitalization)
  Sender: FDA-Public Use
  Company Number: US-MERCK-1108USA02345

PATIENT
  Age: 48 Year
  Sex: Male

DRUGS (2)
  1. MEVACOR [Suspect]
     Route: 048
     Dates: start: 20110101, end: 20110620
  2. MEVACOR [Suspect]
     Indication: HYPERCHOLESTEROLAEMIA
     Route: 048
     Dates: start: 20100401, end: 20110101

REACTIONS (2)
  - CEREBRAL HAEMORRHAGE [None]
  - DRUG ADMINISTRATION ERROR [None]
